FAERS Safety Report 15087541 (Version 1)
Quarter: 2018Q2

REPORT INFORMATION
  Report Type: Spontaneous
  Country: FR (occurrence: FR)
  Receive Date: 20180628
  Receipt Date: 20180628
  Transmission Date: 20180711
  Serious: Yes (Other)
  Sender: FDA-Public Use
  Company Number: FR-009507513-1806FRA009535

PATIENT
  Sex: Female

DRUGS (1)
  1. NEXPLANON [Suspect]
     Active Substance: ETONOGESTREL
     Dosage: 1 DF, UNK
     Route: 059

REACTIONS (6)
  - Device dislocation [Not Recovered/Not Resolved]
  - Complication associated with device [Not Recovered/Not Resolved]
  - Surgery [Not Recovered/Not Resolved]
  - Device difficult to use [Not Recovered/Not Resolved]
  - General anaesthesia [Not Recovered/Not Resolved]
  - Complication of device removal [Not Recovered/Not Resolved]
